FAERS Safety Report 4725213-0 (Version None)
Quarter: 2005Q3

REPORT INFORMATION
  Report Type: 
  Country: None (occurrence: None)
  Receive Date: 20050726
  Receipt Date: 20050711
  Transmission Date: 20060218
  Serious: Yes (Other)
  Sender: FDA-Public Use
  Company Number: HQWYE178313JUL05

PATIENT
  Sex: Female

DRUGS (9)
  1. ENBREL [Suspect]
     Indication: RHEUMATOID ARTHRITIS
     Route: 058
     Dates: start: 20040201
  2. METHOTREXATE [Concomitant]
  3. PREDNISOLONE [Concomitant]
     Dosage: UNKNOWN
     Route: 048
  4. NEXIUM [Concomitant]
     Dosage: UNKNOWN
     Route: 048
  5. ARAVA [Concomitant]
     Dosage: UNKNOWN
     Route: 048
  6. MOBIC [Concomitant]
     Dosage: UNKNOWN
     Route: 048
  7. MULTIVITAMINS, PLAIN [Concomitant]
     Dosage: UNKNOWN
     Route: 048
  8. FOLIC ACID [Concomitant]
  9. UNSPECIFIED MEDICATION [Concomitant]

REACTIONS (4)
  - CATARACT [None]
  - CONVULSION [None]
  - FEELING ABNORMAL [None]
  - IRITIS [None]
